FAERS Safety Report 22159392 (Version 1)
Quarter: 2023Q1

REPORT INFORMATION
  Report Type: Spontaneous
  Country: FR (occurrence: FR)
  Receive Date: 20230331
  Receipt Date: 20230331
  Transmission Date: 20230417
  Serious: Yes (Hospitalization, Other)
  Sender: FDA-Public Use
  Company Number: None

PATIENT
  Age: 67 Year
  Sex: Male
  Weight: 65 kg

DRUGS (1)
  1. IRBESARTAN [Suspect]
     Active Substance: IRBESARTAN
     Indication: Hypertension
     Dosage: 150 MG, QD (1 TABLET/DAY)
     Route: 048
     Dates: start: 20021014, end: 20221020

REACTIONS (7)
  - Cough [Recovered/Resolved]
  - Muscle spasms [Recovered/Resolved]
  - Incontinence [Recovered/Resolved]
  - Sinusitis [Recovered/Resolved]
  - Syncope [Recovered/Resolved]
  - Pharyngitis [Recovered/Resolved]
  - Vertigo [Recovered/Resolved]

NARRATIVE: CASE EVENT DATE: 20020101
